FAERS Safety Report 7867949-9 (Version None)
Quarter: 2011Q4

REPORT INFORMATION
  Report Type: 
  Country: None (occurrence: None)
  Receive Date: 20111028
  Receipt Date: 20100831
  Transmission Date: 20120403
  Serious: No
  Sender: FDA-Public Use
  Company Number: US-BAYER-201032299NA

PATIENT
  Age: 66 Year
  Sex: Male

DRUGS (6)
  1. MAGNESIUM [Concomitant]
  2. POTASSIUM [Concomitant]
  3. ASPIRIN [Concomitant]
  4. MULTIVITAMIN PREPARATION + MINERAL SUPPLEMENT [Concomitant]
  5. HMG COA REDUCTASE INHIBITORS [Concomitant]
  6. LEVITRA [Suspect]
     Indication: ERECTILE DYSFUNCTION
     Dosage: 20 MG, PRN
     Route: 048
     Dates: start: 20100708, end: 20100819

REACTIONS (2)
  - FLUSHING [None]
  - DIZZINESS [None]
